FAERS Safety Report 13041986 (Version 1)
Quarter: 2016Q4

REPORT INFORMATION
  Report Type: Spontaneous
  Country: US (occurrence: US)
  Receive Date: 20161219
  Receipt Date: 20161219
  Transmission Date: 20170207
  Serious: Yes (Life-Threatening)
  Sender: FDA-Public Use
  Company Number: US-ROCHE-1200296

PATIENT
  Sex: Male

DRUGS (1)
  1. ZELBORAF [Suspect]
     Active Substance: VEMURAFENIB
     Indication: MALIGNANT MELANOMA
     Dosage: INDICATION: STAGE IIIB MELANOMA, DOSE INTERRUPTED
     Route: 065

REACTIONS (10)
  - Fatigue [Unknown]
  - Pyrexia [Unknown]
  - Neoplasm skin [Unknown]
  - Arthralgia [Unknown]
  - Feeling abnormal [Unknown]
  - Decreased appetite [Unknown]
  - Malignant melanoma [Unknown]
  - Diarrhoea [Unknown]
  - Asthenia [Unknown]
  - Rash [Unknown]
